FAERS Safety Report 7466937-4 (Version None)
Quarter: 2011Q2

REPORT INFORMATION
  Report Type: 
  Country: None (occurrence: None)
  Receive Date: 20110509
  Receipt Date: 20110324
  Transmission Date: 20111010
  Serious: Yes (Other)
  Sender: FDA-Public Use
  Company Number: US-BAYER-201035919NA

PATIENT
  Age: 28 Year
  Sex: Female
  Weight: 81.633 kg

DRUGS (4)
  1. SYNTHROID [Concomitant]
     Dosage: UNK
     Dates: start: 20100628
  2. ALBUTEROL [Concomitant]
     Dosage: UNK
     Dates: start: 20100628
  3. DROSPIRENONE AND ETHINYL ESTRADIOL [Suspect]
     Indication: PRODUCT USED FOR UNKNOWN INDICATION
     Route: 048
     Dates: start: 20090701, end: 20100301
  4. ZOLOFT [Concomitant]
     Dosage: UNK
     Dates: start: 20100628

REACTIONS (4)
  - GALLBLADDER INJURY [None]
  - HEPATOBILIARY SCAN ABNORMAL [None]
  - CHOLECYSTITIS CHRONIC [None]
  - BILIARY TRACT DISORDER [None]
